FAERS Safety Report 7427551-X (Version None)
Quarter: 2011Q2

REPORT INFORMATION
  Report Type: 
  Country: None (occurrence: None)
  Receive Date: 20110420
  Receipt Date: 20110414
  Transmission Date: 20111010
  Serious: Yes (Hospitalization)
  Sender: FDA-Public Use
  Company Number: JP-MERCK-1103USA03379

PATIENT
  Age: 95 Year
  Sex: Female
  Weight: 44 kg

DRUGS (8)
  1. RENIVEZE [Concomitant]
     Indication: HYPERTENSION
     Route: 048
     Dates: start: 20030701, end: 20110314
  2. BUFFERIN [Concomitant]
     Indication: CEREBRAL INFARCTION
     Route: 048
     Dates: start: 20101217, end: 20110314
  3. DIGOXIN [Concomitant]
     Indication: CARDIAC FAILURE
     Route: 048
     Dates: start: 20030701, end: 20110314
  4. DIGOXIN [Concomitant]
     Indication: CARDIAC VALVE DISEASE
     Route: 048
     Dates: start: 20030701, end: 20110314
  5. MAGNESIUM OXIDE [Concomitant]
     Indication: CONSTIPATION
     Route: 048
     Dates: start: 20030701, end: 20110314
  6. FUROSEMIDE [Concomitant]
     Indication: HYPERTENSION
     Route: 048
     Dates: start: 20030701, end: 20110314
  7. JANUVIA [Suspect]
     Indication: DIABETES MELLITUS
     Route: 048
     Dates: start: 20110224, end: 20110314
  8. JANUVIA [Suspect]
     Route: 048
     Dates: start: 20110210, end: 20110223

REACTIONS (1)
  - HYPERGLYCAEMIA [None]
